FAERS Safety Report 10787974 (Version 1)
Quarter: 2015Q1

REPORT INFORMATION
  Report Type: Spontaneous
  Country: US (occurrence: US)
  Receive Date: 20150212
  Receipt Date: 20150212
  Transmission Date: 20150721
  Serious: No
  Sender: FDA-Public Use
  Company Number: US-GLAXOSMITHKLINE-B0697685A

PATIENT

DRUGS (1)
  1. AVANDIA [Suspect]
     Active Substance: ROSIGLITAZONE MALEATE
     Indication: DIABETES MELLITUS
     Route: 048
     Dates: start: 200302, end: 201003

REACTIONS (4)
  - Palpitations [Unknown]
  - Dyspnoea [Unknown]
  - Heart rate irregular [Unknown]
  - Chest pain [Not Recovered/Not Resolved]
